FAERS Safety Report 11914817 (Version 3)
Quarter: 2016Q1

REPORT INFORMATION
  Report Type: Spontaneous
  Country: GR (occurrence: GR)
  Receive Date: 20160113
  Receipt Date: 20160129
  Transmission Date: 20160526
  Serious: No
  Sender: FDA-Public Use
  Company Number: GR-PFIZER INC-2016012696

PATIENT
  Sex: Female

DRUGS (3)
  1. BETASERC /00141801/ [Concomitant]
     Active Substance: BETAHISTINE
     Dosage: UNK
  2. MEDROL [Suspect]
     Active Substance: METHYLPREDNISOLONE
     Indication: TINNITUS
     Dosage: 16 MG, AS NEEDED
     Route: 048
  3. MEDROL [Suspect]
     Active Substance: METHYLPREDNISOLONE
     Indication: DYSACUSIS

REACTIONS (3)
  - Muscle spasms [Not Recovered/Not Resolved]
  - Product use issue [Unknown]
  - Myalgia [Not Recovered/Not Resolved]
